FAERS Safety Report 11371995 (Version 1)
Quarter: 2015Q3

REPORT INFORMATION
  Report Type: Spontaneous
  Country: DK (occurrence: DE)
  Receive Date: 20150812
  Receipt Date: 20150812
  Transmission Date: 20151125
  Serious: Yes (Other)
  Sender: FDA-Public Use
  Company Number: DE-FRI-1000078853

PATIENT
  Age: 0 Day
  Sex: Male
  Weight: 3.89 kg

DRUGS (2)
  1. FOLIO [Concomitant]
     Active Substance: FOLIC ACID
     Indication: DEPRESSION
     Dosage: 0.4 MG
     Route: 064
  2. CITALOPRAM [Suspect]
     Active Substance: CITALOPRAM HYDROBROMIDE
     Indication: DEPRESSION
     Dosage: 40 MG
     Route: 064
     Dates: start: 20140821, end: 20150521

REACTIONS (3)
  - Apnoea neonatal [Recovered/Resolved]
  - Respiratory disorder neonatal [Recovered/Resolved]
  - Foetal exposure during pregnancy [Recovered/Resolved]

NARRATIVE: CASE EVENT DATE: 20150521
